FAERS Safety Report 5732900-4 (Version None)
Quarter: 2008Q2

REPORT INFORMATION
  Report Type: 
  Country: None (occurrence: None)
  Receive Date: 20080509
  Receipt Date: 20080221
  Transmission Date: 20081010
  Serious: No
  Sender: FDA-Public Use
  Company Number: A0711016A

PATIENT

DRUGS (1)
  1. COREG CR [Suspect]
     Route: 048

REACTIONS (1)
  - ELECTROCARDIOGRAM CHANGE [None]
